FAERS Safety Report 7036325-3 (Version None)
Quarter: 2010Q4

REPORT INFORMATION
  Report Type: 
  Country: None (occurrence: None)
  Receive Date: 20101008
  Receipt Date: 20101001
  Transmission Date: 20110411
  Serious: Yes (Hospitalization)
  Sender: FDA-Public Use
  Company Number: US-AMGEN-KDC438357

PATIENT
  Sex: Male
  Weight: 72.6 kg

DRUGS (15)
  1. PANITUMUMAB [Suspect]
     Indication: COLORECTAL CANCER
     Route: 042
     Dates: start: 20100706
  2. IRINOTECAN HCL [Suspect]
     Route: 042
     Dates: start: 20100706
  3. FLUOROURACIL [Suspect]
     Route: 042
     Dates: start: 20100706
  4. LEUCOVORIN CALCIUM [Concomitant]
     Route: 042
     Dates: start: 20100706
  5. DOXYCYCLINE [Concomitant]
     Route: 048
     Dates: start: 20100720
  6. ALLOPURINOL [Concomitant]
  7. VASOTEC [Concomitant]
  8. LASIX [Concomitant]
  9. PLAVIX [Concomitant]
  10. PYRIDOXINE HCL [Concomitant]
  11. FOLIC ACID [Concomitant]
  12. POTASSIUM CHLORATE [Concomitant]
  13. INDERAL [Concomitant]
  14. THIAMINE HCL [Concomitant]
  15. FLOMAX [Concomitant]

REACTIONS (7)
  - ANAEMIA [None]
  - DEHYDRATION [None]
  - DIARRHOEA [None]
  - HYPOMAGNESAEMIA [None]
  - PNEUMONIA STAPHYLOCOCCAL [None]
  - PULMONARY EMBOLISM [None]
  - SINUS TACHYCARDIA [None]
